FAERS Safety Report 23354093 (Version 1)
Quarter: 2024Q1

REPORT INFORMATION
  Report Type: Spontaneous
  Country: US (occurrence: US)
  Receive Date: 20240101
  Receipt Date: 20240101
  Transmission Date: 20240409
  Serious: Yes (Hospitalization)
  Sender: FDA-Public Use
  Company Number: US-AMGEN-USASP2023229910

PATIENT
  Age: 20 Year
  Sex: Female

DRUGS (1)
  1. RITUXIMAB [Suspect]
     Active Substance: RITUXIMAB
     Indication: Multiple sclerosis
     Dosage: UNK, Q6MO (FOR SIX YEARS)
     Route: 065

REACTIONS (9)
  - Ureaplasma infection [Recovered/Resolved]
  - Hypogammaglobulinaemia [Unknown]
  - Tubo-ovarian abscess [Recovered/Resolved]
  - Pelvic inflammatory disease [Unknown]
  - Wound dehiscence [Unknown]
  - Appendicitis [Unknown]
  - Acute kidney injury [Unknown]
  - COVID-19 [Unknown]
  - Off label use [Unknown]
